FAERS Safety Report 17580233 (Version 1)
Quarter: 2020Q1

REPORT INFORMATION
  Report Type: Spontaneous
  Country: DE (occurrence: DE)
  Receive Date: 20200325
  Receipt Date: 20200325
  Transmission Date: 20200409
  Serious: Yes (Other)
  Sender: FDA-Public Use
  Company Number: DE-PFIZER INC-2020125218

PATIENT
  Age: 39 Year
  Sex: Female
  Weight: 54 kg

DRUGS (1)
  1. CYTOTEC [Suspect]
     Active Substance: MISOPROSTOL
     Indication: LABOUR INDUCTION
     Dosage: 25-25-50-100 MICROGRAMS EACH AT LEAST 6 HOURS APART
     Route: 067
     Dates: start: 20200109, end: 20200110

REACTIONS (8)
  - Acute kidney injury [Unknown]
  - Uterine atony [Unknown]
  - Premature separation of placenta [Unknown]
  - Product use in unapproved indication [Unknown]
  - Off label use [Unknown]
  - Renal tubular necrosis [Unknown]
  - Haemoglobin decreased [Unknown]
  - Uterine tachysystole [Unknown]
